FAERS Safety Report 8518334-8 (Version None)
Quarter: 2012Q3

REPORT INFORMATION
  Report Type: 
  Country: None (occurrence: None)
  Receive Date: 20120718
  Receipt Date: 20120131
  Transmission Date: 20120928
  Serious: No
  Sender: FDA-Public Use
  Company Number: US-BRISTOL-MYERS SQUIBB COMPANY-16377889

PATIENT
  Age: 64 Year
  Sex: Female

DRUGS (2)
  1. LOVENOX [Suspect]
     Indication: THROMBOSIS
     Dosage: INJ,SOLUTION/100MILLIGRAM(S)/MILLILITRE
     Route: 051
     Dates: start: 20111206
  2. COUMADIN [Suspect]
     Indication: THROMBOSIS
     Dates: start: 20111201

REACTIONS (1)
  - ANTICOAGULATION DRUG LEVEL BELOW THERAPEUTIC [None]
